FAERS Safety Report 9434227 (Version 1)
Quarter: 2013Q3

REPORT INFORMATION
  Report Type: Spontaneous
  Country: US (occurrence: None)
  Receive Date: 20130730
  Receipt Date: 20130730
  Transmission Date: 20140515
  Serious: Yes (Life-Threatening, Hospitalization)
  Sender: FDA-Public Use
  Company Number: None

PATIENT
  Age: 41 Year
  Sex: Female
  Weight: 86.18 kg

DRUGS (2)
  1. LASIX [Suspect]
     Indication: RIGHT VENTRICULAR FAILURE
     Dosage: ONE 20 MG TABLET EVERY OTHER DAY PO
     Route: 048
     Dates: start: 20130618, end: 20130618
  2. LASIX [Suspect]
     Indication: FLUID RETENTION
     Dosage: ONE 20 MG TABLET EVERY OTHER DAY PO
     Route: 048
     Dates: start: 20130618, end: 20130618

REACTIONS (24)
  - Dizziness [None]
  - Tachycardia [None]
  - Dyspnoea [None]
  - Bradycardia [None]
  - Gait disturbance [None]
  - Speech disorder [None]
  - Thinking abnormal [None]
  - Headache [None]
  - Nausea [None]
  - Fatigue [None]
  - Somnolence [None]
  - Peripheral coldness [None]
  - Peripheral coldness [None]
  - Feeling cold [None]
  - Asthenia [None]
  - Abdominal pain [None]
  - Abdominal pain [None]
  - Troponin T increased [None]
  - Haemoglobin abnormal [None]
  - Hypokalaemia [None]
  - Arrhythmia [None]
  - Mean cell volume abnormal [None]
  - White blood cell count abnormal [None]
  - Monocyte count abnormal [None]
